FAERS Safety Report 8532169-1 (Version None)
Quarter: 2012Q3

REPORT INFORMATION
  Report Type: 
  Country: None (occurrence: None)
  Receive Date: 20120723
  Receipt Date: 20120525
  Transmission Date: 20120928
  Serious: Yes (Hospitalization)
  Sender: FDA-Public Use
  Company Number: JP-GLAXOSMITHKLINE-B0804471A

PATIENT
  Sex: Male

DRUGS (8)
  1. VALTREX [Suspect]
     Indication: HERPES ZOSTER
     Dosage: 3000MG PER DAY
     Route: 048
     Dates: start: 20120519, end: 20120521
  2. MUCODYNE [Concomitant]
     Dosage: 6IUAX PER DAY
     Route: 048
     Dates: start: 20120515, end: 20120523
  3. FAMOTIDINE [Concomitant]
     Dosage: 1IUAX PER DAY
     Route: 065
     Dates: start: 20120515, end: 20120523
  4. MAGMITT [Concomitant]
     Route: 048
     Dates: start: 20120515, end: 20120523
  5. PANTOSIN [Concomitant]
     Dosage: 1IUAX PER DAY
     Route: 065
     Dates: start: 20120515, end: 20120523
  6. UNASYN [Concomitant]
     Indication: PNEUMONIA
     Dosage: 3IUAX PER DAY
     Route: 065
     Dates: start: 20120515, end: 20120523
  7. TAMSULOSIN HCL [Concomitant]
     Dosage: 1IUAX PER DAY
     Route: 048
     Dates: start: 20120515, end: 20120523
  8. VALTREX [Suspect]
     Dosage: 2000MG PER DAY
     Route: 048
     Dates: start: 20120521, end: 20120523

REACTIONS (7)
  - RENAL IMPAIRMENT [None]
  - BLOOD UREA INCREASED [None]
  - PLEURAL EFFUSION [None]
  - ALTERED STATE OF CONSCIOUSNESS [None]
  - PNEUMONIA [None]
  - C-REACTIVE PROTEIN INCREASED [None]
  - BLOOD CREATININE INCREASED [None]
